FAERS Safety Report 15299155 (Version 1)
Quarter: 2018Q4

REPORT INFORMATION
  Report Type: Spontaneous
  Country: US (occurrence: US)
  Receive Date: 20180821
  Receipt Date: 20180821
  Transmission Date: 20190204
  Serious: No
  Sender: FDA-Public Use
  Company Number: US-TEVA-2018-US-945230

PATIENT
  Sex: Female

DRUGS (1)
  1. MICON (MICONAZOLE) [Suspect]
     Active Substance: MICONAZOLE
     Route: 065
     Dates: start: 20180812

REACTIONS (1)
  - Vaginal haemorrhage [Unknown]

NARRATIVE: CASE EVENT DATE: 20180814
